FAERS Safety Report 19497846 (Version 5)
Quarter: 2021Q4

REPORT INFORMATION
  Report Type: Spontaneous
  Country: US (occurrence: US)
  Receive Date: 20210706
  Receipt Date: 20211123
  Transmission Date: 20220303
  Serious: Yes (Other)
  Sender: FDA-Public Use
  Company Number: US-BAYER-2021-168512

PATIENT
  Age: 41 Year
  Sex: Male

DRUGS (8)
  1. KOGENATE FS [Suspect]
     Active Substance: ANTIHEMOPHILIC FACTOR, HUMAN RECOMBINANT
     Dosage: 2000 U, UNK
     Route: 042
  2. KOGENATE FS [Suspect]
     Active Substance: ANTIHEMOPHILIC FACTOR, HUMAN RECOMBINANT
     Dosage: 4000 U, ONCE; FOR LEFT ARM WRIST BLEED
     Route: 042
  3. KOGENATE FS [Suspect]
     Active Substance: ANTIHEMOPHILIC FACTOR, HUMAN RECOMBINANT
     Dosage: 2000 U, ONCE; FOR LEFT ARM WRIST BLEED
     Route: 042
  4. KOGENATE FS [Suspect]
     Active Substance: ANTIHEMOPHILIC FACTOR, HUMAN RECOMBINANT
     Dosage: 4000 UNK
  5. KOGENATE FS [Suspect]
     Active Substance: ANTIHEMOPHILIC FACTOR, HUMAN RECOMBINANT
     Dosage: 4 DF; INFUSED 4 DOSES FOR LEFT ANKLE ABOUT A MONTH AGO
     Route: 042
     Dates: start: 202107
  6. KOGENATE FS [Suspect]
     Active Substance: ANTIHEMOPHILIC FACTOR, HUMAN RECOMBINANT
     Dosage: 2 DF; INFUSED 2 DOSES ABOUT A WEEK AGO FOR RIGHT WRIST
     Route: 042
     Dates: start: 202108
  7. KOGENATE FS [Suspect]
     Active Substance: ANTIHEMOPHILIC FACTOR, HUMAN RECOMBINANT
     Dosage: 5 DF, FOR THE RIGHT ELBOW BLEED TREATMENT
     Route: 042
     Dates: start: 20211106
  8. KOGENATE FS [Suspect]
     Active Substance: ANTIHEMOPHILIC FACTOR, HUMAN RECOMBINANT
     Dosage: 5 DF, FOR THE LEFT FOOT BLEED TREATMENT
     Route: 042
     Dates: start: 20211109

REACTIONS (9)
  - Haemorrhage [Recovered/Resolved]
  - Haemarthrosis [None]
  - Haemorrhage [None]
  - Haemarthrosis [None]
  - Haemorrhage [Recovered/Resolved]
  - Arthralgia [None]
  - Joint swelling [None]
  - Contusion [None]
  - Peripheral swelling [None]

NARRATIVE: CASE EVENT DATE: 20210629
